FAERS Safety Report 9697412 (Version 1)
Quarter: 2013Q4

REPORT INFORMATION
  Report Type: Spontaneous
  Country: US (occurrence: None)
  Receive Date: 20131119
  Receipt Date: 20131119
  Transmission Date: 20140711
  Serious: Yes (Life-Threatening, Hospitalization)
  Sender: FDA-Public Use
  Company Number: None

PATIENT
  Age: 47 Year
  Sex: Male
  Weight: 99.79 kg

DRUGS (1)
  1. BACTRIM DS [Suspect]
     Indication: WOUND INFECTION
     Route: 048
     Dates: start: 20131014, end: 20131022

REACTIONS (6)
  - Asthenia [None]
  - Pain [None]
  - Decreased appetite [None]
  - Chills [None]
  - Spinal pain [None]
  - Meningitis aseptic [None]
